FAERS Safety Report 12713023 (Version 4)
Quarter: 2017Q2

REPORT INFORMATION
  Report Type: Report from Study
  Country: JP (occurrence: CN)
  Receive Date: 20160902
  Receipt Date: 20170413
  Transmission Date: 20170830
  Serious: Yes (Hospitalization)
  Sender: FDA-Public Use
  Company Number: JP-B.I. PHARMACEUTICALS,INC./RIDGEFIELD-2016-BI-56212YA

PATIENT
  Age: 7 Decade
  Sex: Male

DRUGS (4)
  1. HARNAL [Suspect]
     Active Substance: TAMSULOSIN HYDROCHLORIDE
     Dosage: FORMULATION: ORODISPERSIBLE TABLET
     Route: 065
     Dates: start: 20141111, end: 201606
  2. TAMSULOSIN [Suspect]
     Active Substance: TAMSULOSIN
     Indication: PRODUCT USED FOR UNKNOWN INDICATION
     Route: 065
     Dates: start: 20141015, end: 20141110
  3. TAMSULOSIN [Suspect]
     Active Substance: TAMSULOSIN
     Route: 065
     Dates: start: 20141111, end: 201606
  4. HARNAL [Suspect]
     Active Substance: TAMSULOSIN HYDROCHLORIDE
     Indication: PRODUCT USED FOR UNKNOWN INDICATION
     Dosage: FORMULATION: ORODISPERSIBLE TABLET
     Route: 065
     Dates: start: 20141015, end: 20141110

REACTIONS (1)
  - Urinary retention [Recovered/Resolved]

NARRATIVE: CASE EVENT DATE: 20160601
